FAERS Safety Report 16942951 (Version 3)
Quarter: 2019Q4

REPORT INFORMATION
  Report Type: Spontaneous
  Country: US (occurrence: US)
  Receive Date: 20191021
  Receipt Date: 20191211
  Transmission Date: 20200122
  Serious: Yes (Other)
  Sender: FDA-Public Use
  Company Number: US-009507513-1910USA010289

PATIENT
  Age: 49 Year
  Sex: Female
  Weight: 99.77 kg

DRUGS (1)
  1. NEXPLANON [Suspect]
     Active Substance: ETONOGESTREL
     Indication: CONTRACEPTION
     Dosage: ONE ROD EVERY 3 YEARS/CONTINUOUS
     Route: 059
     Dates: start: 20191010

REACTIONS (1)
  - Device dislocation [Recovering/Resolving]

NARRATIVE: CASE EVENT DATE: 20191012
